FAERS Safety Report 6619217-0 (Version None)
Quarter: 2010Q1

REPORT INFORMATION
  Report Type: 
  Country: None (occurrence: None)
  Receive Date: 20100308
  Receipt Date: 20100302
  Transmission Date: 20100710
  Serious: Yes (Other)
  Sender: FDA-Public Use
  Company Number: ES-MERCK-1003ESP00008

PATIENT
  Age: 34 Month
  Sex: Female

DRUGS (3)
  1. SINGULAIR [Suspect]
     Indication: ASTHMA
     Route: 048
     Dates: start: 20091115, end: 20100116
  2. FLUTICASONE PROPIONATE [Concomitant]
     Indication: ANALGESIC ASTHMA SYNDROME
     Route: 055
     Dates: start: 20080101, end: 20100101
  3. ALBUTEROL SULFATE [Concomitant]
     Indication: ANALGESIC ASTHMA SYNDROME
     Route: 055
     Dates: start: 20080101, end: 20100101

REACTIONS (4)
  - IRRITABILITY [None]
  - MYALGIA [None]
  - NIGHTMARE [None]
  - SLEEP DISORDER [None]
